FAERS Safety Report 12759610 (Version 2)
Quarter: 2016Q4

REPORT INFORMATION
  Report Type: Report from Study
  Country: TW (occurrence: TW)
  Receive Date: 20160919
  Receipt Date: 20161003
  Transmission Date: 20170207
  Serious: Yes (Hospitalization, Other)
  Sender: FDA-Public Use
  Company Number: TW-ASTELLAS-2016US031617

PATIENT
  Age: 20 Year
  Sex: Male

DRUGS (29)
  1. DEXAZONE [Suspect]
     Active Substance: DEXAMETHASONE
     Indication: GRAFT VERSUS HOST DISEASE IN LUNG
     Dosage: 1 MG, ONCE DAILY, AFTER MEALS
     Dates: start: 20160812, end: 20160815
  2. BAKTAR [Concomitant]
     Active Substance: SULFAMETHOXAZOLE\TRIMETHOPRIM
     Indication: PROPHYLAXIS
     Dosage: 1 TAB, ONCE DAILY
     Route: 048
     Dates: start: 20160616
  3. CLEOCIN T [Concomitant]
     Active Substance: CLINDAMYCIN PHOSPHATE
     Dosage: 1 XX D, TWICE DAILY
     Route: 061
     Dates: start: 20160901, end: 20160912
  4. PROGRAF [Suspect]
     Active Substance: TACROLIMUS\TACROLIMUS ANHYDROUS
     Route: 048
     Dates: start: 20160831, end: 20160907
  5. POSANOL [Concomitant]
     Active Substance: POSACONAZOLE
     Indication: INFECTION PROPHYLAXIS
     Route: 048
     Dates: start: 20160707
  6. MAGNESIUM SULFATE. [Concomitant]
     Active Substance: MAGNESIUM SULFATE
     Indication: PRODUCT USED FOR UNKNOWN INDICATION
     Dosage: 32 MEQ, AS NEEDED IF STAT
     Route: 065
     Dates: start: 20160812, end: 20160812
  7. SCRAT [Concomitant]
     Indication: PRODUCT USED FOR UNKNOWN INDICATION
     Dosage: 1 G, THRICE DAILY 1 HOUR BEFORE MEALS
     Route: 048
     Dates: start: 20160726, end: 20160825
  8. SINGULAIR [Concomitant]
     Active Substance: MONTELUKAST SODIUM
     Indication: PRODUCT USED FOR UNKNOWN INDICATION
     Route: 048
     Dates: start: 20160726
  9. PROGRAF [Suspect]
     Active Substance: TACROLIMUS\TACROLIMUS ANHYDROUS
     Indication: GRAFT VERSUS HOST DISEASE IN LUNG
     Route: 048
     Dates: start: 20160812
  10. PROGRAF [Suspect]
     Active Substance: TACROLIMUS\TACROLIMUS ANHYDROUS
     Route: 048
     Dates: start: 20160907
  11. BEROTEC N [Concomitant]
     Indication: PRODUCT USED FOR UNKNOWN INDICATION
     Dosage: 100 ?G (1 PUFF), AS NEEDED
     Route: 055
     Dates: start: 20160726
  12. CLEOCIN T [Concomitant]
     Active Substance: CLINDAMYCIN PHOSPHATE
     Indication: FOLLICULITIS
     Dosage: 1 XX D, TWICE DAILY
     Route: 061
     Dates: start: 20160812, end: 20160819
  13. DETOSIV [Concomitant]
     Indication: PRODUCT USED FOR UNKNOWN INDICATION
     Route: 048
     Dates: start: 20160726
  14. PROGRAF [Suspect]
     Active Substance: TACROLIMUS\TACROLIMUS ANHYDROUS
     Indication: GRAFT VERSUS HOST DISEASE IN LUNG
     Dosage: 0.5 MG, EVERY 12 HOURS
     Route: 048
     Dates: start: 20160812
  15. PROGRAF [Suspect]
     Active Substance: TACROLIMUS\TACROLIMUS ANHYDROUS
     Route: 048
     Dates: start: 20160830, end: 20160902
  16. PROGRAF [Suspect]
     Active Substance: TACROLIMUS\TACROLIMUS ANHYDROUS
     Dosage: 1 MG, EVERY NIGHT
     Route: 048
     Dates: start: 20160831, end: 20160907
  17. COLIROCIN [Concomitant]
     Indication: PRODUCT USED FOR UNKNOWN INDICATION
     Route: 048
     Dates: start: 20160726
  18. DURATEARS                          /00635701/ [Concomitant]
     Indication: PRODUCT USED FOR UNKNOWN INDICATION
     Dosage: 1 DROP EACH EYE, AT BEDTIME
     Route: 047
     Dates: start: 20160805, end: 20160812
  19. POSANOL [Concomitant]
     Active Substance: POSACONAZOLE
     Route: 048
     Dates: start: 20160812, end: 20160901
  20. BLINDED ASP0113 [Suspect]
     Active Substance: INVESTIGATIONAL PRODUCT
     Indication: IMMUNISATION
     Route: 030
     Dates: start: 20160510, end: 20160510
  21. DEXAZONE [Suspect]
     Active Substance: DEXAMETHASONE
     Dosage: 0.5 MG, EVERY OTHER DAY
     Route: 048
     Dates: start: 20160816, end: 20160907
  22. ARTELAC                            /00002701/ [Concomitant]
     Dosage: 1 DROP EACH EYE, 4 TIMES DAILY
     Route: 047
     Dates: start: 20160906
  23. BLINDED ASP0113 [Suspect]
     Active Substance: INVESTIGATIONAL PRODUCT
     Route: 030
     Dates: start: 20160601, end: 20160601
  24. LOMEXIN [Concomitant]
     Indication: PRODUCT USED FOR UNKNOWN INDICATION
     Dosage: 2 PUFFS, ONCE DAILY
     Route: 065
     Dates: start: 20160725, end: 20160819
  25. DEXAMETHASONE. [Concomitant]
     Active Substance: DEXAMETHASONE
     Indication: PRODUCT USED FOR UNKNOWN INDICATION
     Dosage: UNK UNK, UNKNOWN FREQ.
     Route: 065
  26. BLINDED ASP0113 [Suspect]
     Active Substance: INVESTIGATIONAL PRODUCT
     Route: 030
     Dates: start: 20160722, end: 20160722
  27. PROGRAF [Suspect]
     Active Substance: TACROLIMUS\TACROLIMUS ANHYDROUS
     Route: 048
     Dates: start: 20160907
  28. SINGULAIR [Concomitant]
     Active Substance: MONTELUKAST SODIUM
     Route: 048
     Dates: start: 20160828, end: 20160902
  29. ARTELAC                            /00002701/ [Concomitant]
     Indication: DRY EYE
     Dosage: 1 DROPS EACH EYE, TWICE DAILY
     Route: 047
     Dates: start: 20160805, end: 20160812

REACTIONS (3)
  - Chronic graft versus host disease in liver [Recovered/Resolved]
  - Acinetobacter infection [Recovered/Resolved]
  - Epstein-Barr viraemia [Recovered/Resolved]

NARRATIVE: CASE EVENT DATE: 20160815
